FAERS Safety Report 7972046-8 (Version None)
Quarter: 2011Q4

REPORT INFORMATION
  Report Type: 
  Country: None (occurrence: None)
  Receive Date: 20111212
  Receipt Date: 20111130
  Transmission Date: 20120403
  Serious: Yes (Disabling)
  Sender: FDA-Public Use
  Company Number: US-ELI_LILLY_AND_COMPANY-US201112001098

PATIENT
  Sex: Female

DRUGS (2)
  1. OXYCONTIN [Concomitant]
     Dosage: 20 MG, EVERY 4 HRS
  2. FORTEO [Suspect]
     Indication: OSTEOPOROSIS
     Dosage: 20 UG, QD
     Dates: start: 20100101, end: 20110817

REACTIONS (9)
  - BONE PAIN [None]
  - WALKING DISABILITY [None]
  - PAIN [None]
  - ARTHROPATHY [None]
  - MUSCLE SPASMS [None]
  - OSTEOARTHRITIS [None]
  - ARTHRALGIA [None]
  - DISABILITY [None]
  - RIB DEFORMITY [None]
